FAERS Safety Report 6203798-5 (Version None)
Quarter: 2009Q2

REPORT INFORMATION
  Report Type: 
  Country: None (occurrence: None)
  Receive Date: 20090527
  Receipt Date: 20090515
  Transmission Date: 20091009
  Serious: Yes (Life-Threatening)
  Sender: FDA-Public Use
  Company Number: GB-PFIZER INC-2008047184

PATIENT
  Age: 55 Year
  Sex: Female
  Weight: 56 kg

DRUGS (8)
  1. CHAMPIX [Suspect]
     Indication: SMOKING CESSATION THERAPY
     Route: 048
     Dates: start: 20080401, end: 20080404
  2. AMITRIPTLINE HYDROCHLORIDE TAB [Concomitant]
     Route: 048
  3. ACETYLSALICYLIC ACID [Concomitant]
     Route: 048
  4. DIAZEPAM [Concomitant]
     Route: 048
  5. DICLOFENAC SODIUM [Concomitant]
     Route: 048
  6. EZETIMIBE [Concomitant]
     Route: 048
  7. FRUSEMIDE [Concomitant]
     Route: 048
  8. PREMARIN [Concomitant]
     Route: 048

REACTIONS (1)
  - ANGIOEDEMA [None]
